FAERS Safety Report 17908948 (Version 2)
Quarter: 2020Q3

REPORT INFORMATION
  Report Type: Spontaneous
  Country: CO (occurrence: CO)
  Receive Date: 20200617
  Receipt Date: 20200702
  Transmission Date: 20201103
  Serious: Yes (Other)
  Sender: FDA-Public Use
  Company Number: CO-VERITY PHARMACEUTICALS, INC.-2020VTY00041

PATIENT
  Age: 8 Year
  Sex: Female

DRUGS (1)
  1. TRELSTAR [Suspect]
     Active Substance: TRIPTORELIN PAMOATE
     Indication: PRECOCIOUS PUBERTY
     Dosage: 11.25 MG
     Route: 030
     Dates: start: 20171207

REACTIONS (5)
  - Brain neoplasm [Not Recovered/Not Resolved]
  - Gaze palsy [Not Recovered/Not Resolved]
  - Rathke^s cleft cyst [Not Recovered/Not Resolved]
  - Attention deficit hyperactivity disorder [Not Recovered/Not Resolved]
  - Headache [Not Recovered/Not Resolved]

NARRATIVE: CASE EVENT DATE: 201711
